FAERS Safety Report 16299771 (Version 1)
Quarter: 2019Q2

REPORT INFORMATION
  Report Type: Spontaneous
  Country: FR (occurrence: FR)
  Receive Date: 20190510
  Receipt Date: 20190510
  Transmission Date: 20190711
  Serious: Yes (Life-Threatening)
  Sender: FDA-Public Use
  Company Number: PHHY2019FR106120

PATIENT
  Age: 22 Year
  Sex: Female

DRUGS (7)
  1. ACUPAN [Suspect]
     Active Substance: NEFOPAM HYDROCHLORIDE
     Indication: PRODUCT USED FOR UNKNOWN INDICATION
     Dosage: 1 DF, UNK
     Route: 065
  2. ANDROCUR [Concomitant]
     Active Substance: CYPROTERONE ACETATE
     Indication: PRODUCT USED FOR UNKNOWN INDICATION
     Route: 065
  3. PROPOFOL. [Concomitant]
     Active Substance: PROPOFOL
     Indication: PRODUCT USED FOR UNKNOWN INDICATION
     Route: 065
  4. SUFENTANIL [Concomitant]
     Active Substance: SUFENTANIL
     Indication: PRODUCT USED FOR UNKNOWN INDICATION
     Route: 065
  5. FLUTIFORM [Concomitant]
     Active Substance: FLUTICASONE PROPIONATE\FORMOTEROL FUMARATE
     Indication: PRODUCT USED FOR UNKNOWN INDICATION
     Route: 065
  6. DEXAMETHASONE. [Suspect]
     Active Substance: DEXAMETHASONE
     Indication: PRODUCT USED FOR UNKNOWN INDICATION
     Route: 065
  7. OPTILOVA [Concomitant]
     Active Substance: ETHINYL ESTRADIOL\LEVONORGESTREL
     Indication: PRODUCT USED FOR UNKNOWN INDICATION
     Route: 065

REACTIONS (4)
  - Throat tightness [Recovered/Resolved]
  - Dyspnoea [Recovered/Resolved]
  - Palpitations [Recovered/Resolved]
  - Rash [Recovered/Resolved]

NARRATIVE: CASE EVENT DATE: 201805
